FAERS Safety Report 9732490 (Version 2)
Quarter: 2013Q4

REPORT INFORMATION
  Report Type: Spontaneous
  Country: US (occurrence: US)
  Receive Date: 20131205
  Receipt Date: 20131212
  Transmission Date: 20140711
  Serious: No
  Sender: FDA-Public Use
  Company Number: US-PFIZER INC-2013347299

PATIENT
  Age: 56 Year
  Sex: Female
  Weight: 63.49 kg

DRUGS (14)
  1. LYRICA [Suspect]
     Indication: MIGRAINE PROPHYLAXIS
     Dosage: 50 MG, 2X/DAY
     Route: 048
     Dates: start: 2006
  2. CRESTOR [Suspect]
     Indication: BLOOD CHOLESTEROL INCREASED
     Dosage: 10 MG, 1X/DAY
  3. ALTACE [Concomitant]
     Dosage: 2.5 MG, 1X/DAY
  4. ASACOL [Concomitant]
     Dosage: 800 MG, 2X/DAY
  5. PAXIL [Concomitant]
     Dosage: 20 MG, 1X/DAY
  6. PROTONIX [Concomitant]
     Dosage: 40 MG, 1X/DAY
  7. XANAX [Concomitant]
     Dosage: 0.5 MG, 1X/DAY
  8. ASPIRIN [Concomitant]
     Dosage: 81 MG, 1X/DAY
  9. CALCIUM [Concomitant]
     Dosage: 1200 UNITS, 1X/DAY
  10. FIORICET [Concomitant]
     Indication: MIGRAINE
     Dosage: UNK, AS NEEDED
  11. TYLENOL W/CODEINE NO. 3 [Concomitant]
     Indication: BACK PAIN
     Dosage: UNK, AS NEEDED
  12. MOTRIN [Concomitant]
     Dosage: 800 MG, AS NEEDED
  13. SPRYCEL [Concomitant]
     Indication: LEUKAEMIA
     Dosage: 50 MG, 1X/DAY
  14. FLEXERIL [Concomitant]
     Indication: MUSCLE RELAXANT THERAPY
     Dosage: 20 MG, AS NEEDED

REACTIONS (3)
  - Off label use [Unknown]
  - Blood cholesterol increased [Unknown]
  - Blood cholesterol abnormal [Unknown]
